FAERS Safety Report 9596051 (Version 2)
Quarter: 2013Q4

REPORT INFORMATION
  Report Type: Spontaneous
  Country: US (occurrence: US)
  Receive Date: 20131004
  Receipt Date: 20131021
  Transmission Date: 20140711
  Serious: Yes (Other)
  Sender: FDA-Public Use
  Company Number: US-PFIZER INC-2013283891

PATIENT
  Age: 54 Year
  Sex: Female
  Weight: 82.54 kg

DRUGS (5)
  1. PROTONIX [Suspect]
     Dosage: UNK
  2. ZOLOFT [Suspect]
     Indication: DEPRESSION
     Dosage: 100 MG, 1X/DAY
  3. ZOLOFT [Suspect]
     Indication: CONFUSIONAL STATE
  4. CYMBALTA [Suspect]
     Indication: NERVOUS SYSTEM DISORDER
     Dosage: 60 MG, 1X/DAY
     Dates: end: 20130823
  5. LISINOPRIL [Concomitant]
     Indication: HYPERTENSION
     Dosage: 10 MG, 1X/DAY

REACTIONS (7)
  - Diabetes mellitus [Unknown]
  - Burning sensation [Unknown]
  - Paraesthesia [Unknown]
  - Muscle spasms [Unknown]
  - Fibromyalgia [Unknown]
  - Depressed mood [Unknown]
  - Malaise [Recovered/Resolved]
